FAERS Safety Report 8373097-4 (Version None)
Quarter: 2012Q2

REPORT INFORMATION
  Report Type: 
  Country: None (occurrence: None)
  Receive Date: 20120521
  Receipt Date: 20120516
  Transmission Date: 20120825
  Serious: No
  Sender: FDA-Public Use
  Company Number: US-PFIZER INC-2012119512

PATIENT
  Sex: Female
  Weight: 89.34 kg

DRUGS (1)
  1. NORPACE [Suspect]
     Indication: ATRIAL FIBRILLATION
     Dosage: 150 MG, 2X/DAY
     Route: 048

REACTIONS (1)
  - TREMOR [None]
